FAERS Safety Report 4908395-7 (Version None)
Quarter: 2006Q1

REPORT INFORMATION
  Report Type: 
  Country: None (occurrence: None)
  Receive Date: 20060210
  Receipt Date: 20060202
  Transmission Date: 20060701
  Serious: Yes (Other)
  Sender: FDA-Public Use
  Company Number: JP-JNJFOC-20060105901

PATIENT
  Age: 68 Year
  Sex: Female

DRUGS (9)
  1. RISPERDAL [Suspect]
     Indication: DRUG USE FOR UNKNOWN INDICATION
     Route: 048
  2. SENNOSIDE [Suspect]
     Indication: DRUG USE FOR UNKNOWN INDICATION
  3. BIPERIDEN HYDROCHLORIDE TAB [Suspect]
     Indication: DRUG USE FOR UNKNOWN INDICATION
  4. MAGNESIUM OXIDE [Suspect]
     Indication: DRUG USE FOR UNKNOWN INDICATION
  5. ASPIRIN-DIALUMINATE [Suspect]
  6. ASPIRIN-DIALUMINATE [Suspect]
  7. ASPIRIN-DIALUMINATE [Suspect]
     Indication: DRUG USE FOR UNKNOWN INDICATION
  8. HYPNOTICS AND SEDATIVES, ANTIANXIETICS [Suspect]
     Indication: DRUG USE FOR UNKNOWN INDICATION
  9. PURGATIVES AND CLYSTERS [Concomitant]

REACTIONS (1)
  - ANAEMIA [None]
